FAERS Safety Report 19642048 (Version 1)
Quarter: 2021Q3

REPORT INFORMATION
  Report Type: Spontaneous
  Country: DE (occurrence: DE)
  Receive Date: 20210730
  Receipt Date: 20210730
  Transmission Date: 20211014
  Serious: Yes (Congenital Anomaly, Other)
  Sender: FDA-Public Use
  Company Number: PHHY2018DE029023

PATIENT
  Sex: Male
  Weight: 3.96 kg

DRUGS (3)
  1. XIPAMIDE [Suspect]
     Active Substance: XIPAMIDE
     Indication: FOETAL EXPOSURE DURING PREGNANCY
     Dosage: UNK MATERNAL DOSE (EXPOSURE DURATION: 0?15 PLUS 3 WEEKS)
     Route: 064
  2. RAMIPRIL. [Suspect]
     Active Substance: RAMIPRIL
     Indication: FOETAL EXPOSURE DURING PREGNANCY
     Dosage: MATERNAL DOSE OF 2.5 MG (EXPOSURE DURATION: 0?13 WEEKS)
     Route: 064
  3. MOXIFLOXACIN. [Suspect]
     Active Substance: MOXIFLOXACIN
     Indication: FOETAL EXPOSURE DURING PREGNANCY
     Dosage: UNK MATERNAL DOSE (EXPOSURE DURATION: 1ST TRIMESTER)
     Route: 064

REACTIONS (2)
  - Fallot^s tetralogy [Unknown]
  - Foetal exposure during pregnancy [Unknown]
